FAERS Safety Report 21800563 (Version 1)
Quarter: 2022Q4

REPORT INFORMATION
  Report Type: Report from Study
  Country: MX (occurrence: None)
  Receive Date: 20221230
  Receipt Date: 20221230
  Transmission Date: 20230113
  Serious: Yes (Life-Threatening, Hospitalization)
  Sender: FDA-Public Use
  Company Number: MX-ROCHE-3254476

PATIENT
  Age: 58 Year
  Sex: Female
  Weight: 81.8 kg

DRUGS (4)
  1. POLATUZUMAB VEDOTIN [Suspect]
     Active Substance: POLATUZUMAB VEDOTIN
     Indication: Diffuse large B-cell lymphoma
     Dosage: DATE OF MOST RECENT DOSE OF POLATUZUMAB VEDOTIN PRIOR TO AE AND SAE ONSET 13/DEC/2022 AT 147 MG
     Route: 042
     Dates: start: 20221004
  2. RITUXIMAB [Suspect]
     Active Substance: RITUXIMAB
     Indication: Diffuse large B-cell lymphoma
     Dosage: DATE OF MOST RECENT DOSE OF RITUXIMAB PRIOR TO AE AND SAE ONSET 13/DEC/2022 AT 701 MG
     Route: 042
     Dates: start: 20221004
  3. GEMCITABINE [Suspect]
     Active Substance: GEMCITABINE
     Indication: Diffuse large B-cell lymphoma
     Dosage: DATE OF MOST RECENT DOSE OF GEMCITABINE PRIOR TO AE AND SAE ONSET 14/DEC/2022 AT 1870 MG
     Route: 042
     Dates: start: 20221005
  4. OXALIPLATIN [Suspect]
     Active Substance: OXALIPLATIN
     Indication: Diffuse large B-cell lymphoma
     Dosage: DATE OF MOST RECENT DOSE OF OXALIPLATIN PRIOR TO AE  AND SAE ONSET 14/DEC/2022 AT 187 MG
     Route: 042
     Dates: start: 20221005

REACTIONS (1)
  - COVID-19 [Recovering/Resolving]

NARRATIVE: CASE EVENT DATE: 20221226
